FAERS Safety Report 4422141-5 (Version None)
Quarter: 2004Q3

REPORT INFORMATION
  Report Type: 
  Country: None (occurrence: None)
  Receive Date: 20040805
  Receipt Date: 20040728
  Transmission Date: 20050211
  Serious: Yes (Other)
  Sender: FDA-Public Use
  Company Number: HQWYE587109APR03

PATIENT
  Sex: Male

DRUGS (2)
  1. DIMETAPP [Suspect]
     Dosage: ORAL
     Route: 048
     Dates: start: 20000523
  2. TAVIST-D (CLEMASTINE FUMARATE/PHENYLPROPANOLAMINE HYDROCHLORIDE, ) [Suspect]

REACTIONS (1)
  - CEREBROVASCULAR ACCIDENT [None]
